FAERS Safety Report 24143254 (Version 1)
Quarter: 2024Q3

REPORT INFORMATION
  Report Type: Spontaneous
  Country: US (occurrence: US)
  Receive Date: 20240726
  Receipt Date: 20240726
  Transmission Date: 20241017
  Serious: No
  Sender: PURDUE
  Company Number: US-PURDUE PHARMA-USA-2024-0310958

PATIENT
  Age: 51 Year
  Sex: Female

DRUGS (1)
  1. BUTRANS [Suspect]
     Active Substance: BUPRENORPHINE
     Indication: Pain
     Dosage: 20 MCG, WEEKLY
     Route: 062

REACTIONS (3)
  - Tremor [Unknown]
  - Incorrect product administration duration [Unknown]
  - Product availability issue [Unknown]
